FAERS Safety Report 10279033 (Version 3)
Quarter: 2016Q4

REPORT INFORMATION
  Report Type: Spontaneous
  Country: JP (occurrence: JP)
  Receive Date: 20140707
  Receipt Date: 20161223
  Transmission Date: 20170206
  Serious: Yes (Other)
  Sender: FDA-Public Use
  Company Number: JP-009507513-1403JPN011664

PATIENT
  Age: 33 Year
  Sex: Female

DRUGS (21)
  1. WARFARIN POTASSIUM [Interacting]
     Active Substance: WARFARIN POTASSIUM
     Indication: RENAL VEIN THROMBOSIS
     Dosage: 2.5 MG, PER DAY
     Route: 048
     Dates: start: 20121023
  2. WARFARIN POTASSIUM [Interacting]
     Active Substance: WARFARIN POTASSIUM
     Dosage: DAILY DOSE: 2 MG
     Route: 048
     Dates: start: 20130827
  3. EMEND [Suspect]
     Active Substance: APREPITANT
     Indication: PROPHYLAXIS OF NAUSEA AND VOMITING
     Dosage: DOSE UNSPECIFIED
     Route: 048
     Dates: start: 20121127, end: 20121127
  4. WARFARIN POTASSIUM [Interacting]
     Active Substance: WARFARIN POTASSIUM
     Dosage: DAILY DOSE:1 MG
     Route: 048
     Dates: start: 20130613, end: 20130826
  5. TS-1 [Concomitant]
     Active Substance: GIMERACIL\OTERACIL\TEGAFUR
     Dosage: UNK
     Dates: start: 20130508, end: 20130806
  6. WARFARIN POTASSIUM [Interacting]
     Active Substance: WARFARIN POTASSIUM
     Dosage: DAILY DOSE: 4.5 MG
     Route: 048
     Dates: start: 20130409, end: 20130610
  7. CISPLATIN. [Concomitant]
     Active Substance: CISPLATIN
     Indication: CERVIX CARCINOMA STAGE II
     Dosage: 4 CYCLES
     Route: 013
  8. FLUOROURACIL. [Concomitant]
     Active Substance: FLUOROURACIL
     Indication: CERVIX CARCINOMA STAGE II
     Dosage: 4 CYCLES
     Route: 013
  9. OXALIPLATIN. [Concomitant]
     Active Substance: OXALIPLATIN
     Dosage: UNK
     Dates: start: 20130508
  10. EMEND [Interacting]
     Active Substance: APREPITANT
     Dosage: UNK
     Route: 048
     Dates: start: 20121218, end: 20121218
  11. PACLITAXEL. [Concomitant]
     Active Substance: PACLITAXEL
     Dosage: 5 CYCLES
  12. CARBOPLATIN. [Concomitant]
     Active Substance: CARBOPLATIN
     Dosage: 5 CYCLES
  13. ETOPOSIDE. [Concomitant]
     Active Substance: ETOPOSIDE
     Dosage: 3 CYCLES
  14. JUZEN-TAIHO-TO [Concomitant]
     Active Substance: UNSPECIFIED INGREDIENT
     Dosage: UNK
     Dates: start: 20130426
  15. EMEND [Interacting]
     Active Substance: APREPITANT
     Dosage: UNK
     Route: 048
     Dates: start: 20130115, end: 20130115
  16. EMEND [Interacting]
     Active Substance: APREPITANT
     Dosage: 125 MG, QD
     Route: 048
     Dates: start: 20130318, end: 20130318
  17. EMEND [Interacting]
     Active Substance: APREPITANT
     Dosage: 80 MG, QD
     Route: 048
     Dates: start: 20130319, end: 20130319
  18. CRAVIT [Concomitant]
     Active Substance: LEVOFLOXACIN
     Dosage: UNK
     Dates: start: 20130615, end: 20130619
  19. EMEND [Interacting]
     Active Substance: APREPITANT
     Dosage: UNK
     Route: 048
     Dates: start: 20130214, end: 20130214
  20. WARFARIN POTASSIUM [Interacting]
     Active Substance: WARFARIN POTASSIUM
     Dosage: DAILY DOSE: 4 MG
     Route: 048
     Dates: start: 20130305, end: 20130408
  21. IRINOTECAN HYDROCHLORIDE. [Concomitant]
     Active Substance: IRINOTECAN HYDROCHLORIDE
     Dosage: 10 CYCLES OF WEEKLY

REACTIONS (3)
  - Drug interaction [Unknown]
  - Haemorrhage subcutaneous [Unknown]
  - Prothrombin time ratio decreased [Unknown]

NARRATIVE: CASE EVENT DATE: 20130611
